FAERS Safety Report 26097379 (Version 1)
Quarter: 2025Q4

REPORT INFORMATION
  Report Type: Report from Study
  Country: EU (occurrence: EU)
  Receive Date: 20251127
  Receipt Date: 20251127
  Transmission Date: 20260117
  Serious: Yes (Other)
  Sender: ABBVIE
  Company Number: EU-ABBVIE-6565069

PATIENT
  Age: 73 Year
  Sex: Male

DRUGS (1)
  1. FOSCARBIDOPA\FOSLEVODOPA [Suspect]
     Active Substance: FOSCARBIDOPA\FOSLEVODOPA
     Indication: Parkinson^s disease
     Dosage: DAILY DOSE: 1.987,2 MG, CRL: 0.26ML/H, CRB: 0.35ML/H, CRH: 0.37ML/H, ED: 0.3ML, LD: 0.6ML
     Route: 058
     Dates: start: 20241212

REACTIONS (1)
  - Breast cancer male [Unknown]

NARRATIVE: CASE EVENT DATE: 20250601
